FAERS Safety Report 18948112 (Version 1)
Quarter: 2021Q1

REPORT INFORMATION
  Report Type: Spontaneous
  Country: DK (occurrence: DK)
  Receive Date: 20210227
  Receipt Date: 20210227
  Transmission Date: 20210420
  Serious: Yes (Other)
  Sender: FDA-Public Use
  Company Number: DK-NOVITIUMPHARMA-2021DKNVP00019

PATIENT
  Age: 27 Year
  Sex: Female

DRUGS (1)
  1. ACETAZOLAMIDE. [Suspect]
     Active Substance: ACETAZOLAMIDE
     Indication: INTRACRANIAL PRESSURE INCREASED

REACTIONS (3)
  - Respiratory failure [Unknown]
  - Off label use [Unknown]
  - Metabolic acidosis [Unknown]
